FAERS Safety Report 22086832 (Version 4)
Quarter: 2023Q2

REPORT INFORMATION
  Report Type: Report from Study
  Country: US (occurrence: US)
  Receive Date: 20230312
  Receipt Date: 20230608
  Transmission Date: 20230722
  Serious: Yes (Other)
  Sender: FDA-Public Use
  Company Number: US-002147023-NVSC2023US051315

PATIENT
  Age: 79 Year
  Sex: Female
  Weight: 108.9 kg

DRUGS (10)
  1. COSENTYX [Suspect]
     Active Substance: SECUKINUMAB
     Indication: Psoriasis
     Dosage: 300 MG, QMO
     Route: 058
     Dates: start: 20230104, end: 20230207
  2. SENNOSIDES [Suspect]
     Active Substance: SENNOSIDES
     Indication: Constipation
     Dosage: 8.6 MG, BID
     Route: 065
  3. TACROLIMUS [Concomitant]
     Active Substance: TACROLIMUS
     Indication: Psoriasis
     Dosage: UNK UNK, QD
     Route: 061
  4. CARDIZEM [Concomitant]
     Active Substance: DILTIAZEM HYDROCHLORIDE
     Indication: Hypertension
     Dosage: 90 MG, BID
     Route: 065
  5. ASPIRIN [Concomitant]
     Active Substance: ASPIRIN
     Indication: Myocardial infarction
     Dosage: 81 MG, QD
     Route: 065
  6. PROTONIX [Concomitant]
     Active Substance: PANTOPRAZOLE SODIUM
     Indication: Gastrooesophageal reflux disease
     Dosage: 40 MG, QD
     Route: 065
  7. NEURONTIN [Concomitant]
     Active Substance: GABAPENTIN
     Indication: Product used for unknown indication
     Dosage: 100 MG, QID
     Route: 065
  8. BUMETANIDE [Concomitant]
     Active Substance: BUMETANIDE
     Indication: Chronic obstructive pulmonary disease
     Dosage: 3 MG (2 MG EVERY AM; 1 MG EVERY PM)
     Route: 065
  9. COMBIVENT RESPIMAT [Concomitant]
     Active Substance: ALBUTEROL SULFATE\IPRATROPIUM BROMIDE
     Indication: Chronic obstructive pulmonary disease
     Dosage: 20 UG, PRN
     Route: 065
  10. METOLAZONE [Concomitant]
     Active Substance: METOLAZONE
     Indication: Cardiac failure congestive
     Dosage: 5 MG, QD
     Route: 065

REACTIONS (7)
  - Hypersensitivity [Recovered/Resolved]
  - Swelling face [Unknown]
  - Pharyngeal swelling [Unknown]
  - Nausea [Unknown]
  - Abdominal pain [Unknown]
  - Abdominal distension [Unknown]
  - Constipation [Unknown]

NARRATIVE: CASE EVENT DATE: 20230204
